APPROVED DRUG PRODUCT: HEPARIN SODIUM 25,000 UNITS IN SODIUM CHLORIDE 0.45%
Active Ingredient: HEPARIN SODIUM
Strength: 100 UNITS/ML
Dosage Form/Route: INJECTABLE;INJECTION
Application: N017029 | Product #025
Applicant: FRESENIUS KABI USA LLC
Approved: Aug 24, 2017 | RLD: Yes | RS: Yes | Type: RX